FAERS Safety Report 14647139 (Version 1)
Quarter: 2018Q1

REPORT INFORMATION
  Report Type: Spontaneous
  Country: US (occurrence: US)
  Receive Date: 20180315
  Receipt Date: 20180315
  Transmission Date: 20180509
  Serious: No
  Sender: FDA-Public Use
  Company Number: None

PATIENT
  Age: 64 Year
  Sex: Male
  Weight: 67.5 kg

DRUGS (10)
  1. UP AND UP ALLERGY RELIEF (FEXOFENADINE HYDROCHLORIDE) [Suspect]
     Active Substance: FEXOFENADINE HYDROCHLORIDE
     Indication: ALOPECIA
     Dosage: ?          QUANTITY:1 TABLET(S);?
     Route: 048
     Dates: start: 20180208, end: 20180311
  2. LISINOPRIL. [Concomitant]
     Active Substance: LISINOPRIL
  3. MOMETAZONE FUROATE [Concomitant]
  4. PRAVASTATIN. [Concomitant]
     Active Substance: PRAVASTATIN
  5. VITAMIN D [Concomitant]
     Active Substance: CHOLECALCIFEROL
  6. UP AND UP ALLERGY RELIEF (FEXOFENADINE HYDROCHLORIDE) [Suspect]
     Active Substance: FEXOFENADINE HYDROCHLORIDE
     Indication: RHINITIS
     Dosage: ?          QUANTITY:1 TABLET(S);?
     Route: 048
     Dates: start: 20180208, end: 20180311
  7. LEVOTHYROXIN [Concomitant]
     Active Substance: LEVOTHYROXINE
  8. VITAMIN B12 [Concomitant]
     Active Substance: CYANOCOBALAMIN
  9. MINOXIDIL. [Concomitant]
     Active Substance: MINOXIDIL
  10. ASPIRIN. [Concomitant]
     Active Substance: ASPIRIN

REACTIONS (2)
  - Drug ineffective [None]
  - Product substitution issue [None]

NARRATIVE: CASE EVENT DATE: 20180212
